FAERS Safety Report 10050690 (Version 1)
Quarter: 2014Q2

REPORT INFORMATION
  Report Type: Spontaneous
  Country: US (occurrence: US)
  Receive Date: 20140401
  Receipt Date: 20140401
  Transmission Date: 20141212
  Serious: No
  Sender: FDA-Public Use
  Company Number: US-ASTRAZENECA-2013SE69066

PATIENT
  Sex: Female

DRUGS (2)
  1. NEXIUM [Suspect]
     Route: 048
     Dates: start: 20130908
  2. DEANXIT [Suspect]
     Route: 065

REACTIONS (2)
  - Nervous system disorder [Unknown]
  - Drug withdrawal syndrome [Unknown]
